FAERS Safety Report 9726076 (Version 2)
Quarter: 2013Q4

REPORT INFORMATION
  Report Type: Report from Study
  Country: FR (occurrence: FR)
  Receive Date: 20131203
  Receipt Date: 20131211
  Transmission Date: 20140711
  Serious: Yes (Death)
  Sender: FDA-Public Use
  Company Number: FR-SA-2013SA123061

PATIENT
  Age: 69 Year
  Sex: Female

DRUGS (2)
  1. CAMPATH [Suspect]
     Indication: CHRONIC LYMPHOCYTIC LEUKAEMIA RECURRENT
     Dosage: 30 MG, 3X/WEEK
     Route: 065
     Dates: start: 20130429, end: 20130828
  2. CAMPATH [Suspect]
     Indication: CHRONIC LYMPHOCYTIC LEUKAEMIA RECURRENT
     Dosage: 30 MG, 3X/WEEK
     Route: 065
     Dates: start: 20130429, end: 20130828

REACTIONS (3)
  - Cerebral haemorrhage [Fatal]
  - Thrombocytopenia [Fatal]
  - Fall [Unknown]
